FAERS Safety Report 11992094 (Version 2)
Quarter: 2019Q1

REPORT INFORMATION
  Report Type: Spontaneous
  Country: US (occurrence: US)
  Receive Date: 20160203
  Receipt Date: 20190201
  Transmission Date: 20190417
  Serious: No
  Sender: FDA-Public Use
  Company Number: US-JNJFOC-20160104644

PATIENT
  Age: 94 Year
  Sex: Female
  Weight: 58.06 kg

DRUGS (4)
  1. LORATADINE. [Concomitant]
     Active Substance: LORATADINE
     Indication: HYPERTENSION
     Dosage: 20MG DAILY YEARS
     Route: 065
  2. AMLODIPINE [Concomitant]
     Active Substance: AMLODIPINE BESYLATE
     Indication: HYPERTENSION
     Dosage: 5MG DAILY YEARS
     Route: 065
  3. MOTRIN IB [Suspect]
     Active Substance: IBUPROFEN
     Indication: PAIN IN EXTREMITY
     Dosage: 2 CAPLETS EVERY 4 TO 6 HOURS
     Route: 048
  4. MOTRIN IB [Suspect]
     Active Substance: IBUPROFEN
     Route: 048

REACTIONS (3)
  - Incorrect product administration duration [Unknown]
  - Constipation [Recovered/Resolved]
  - Therapeutic response decreased [Unknown]
